FAERS Safety Report 9813146 (Version 1)
Quarter: 2014Q1

REPORT INFORMATION
  Report Type: Spontaneous
  Country: US (occurrence: US)
  Receive Date: 20140113
  Receipt Date: 20140113
  Transmission Date: 20141002
  Serious: No
  Sender: FDA-Public Use
  Company Number: US-PFIZER INC-2014010217

PATIENT
  Age: 52 Year
  Sex: Female
  Weight: 90.7 kg

DRUGS (4)
  1. LYRICA [Suspect]
     Dosage: 100 MG, 4X/DAY
     Route: 048
  2. LYRICA [Suspect]
     Dosage: 100 MG, 4X/DAY
     Route: 048
     Dates: end: 201311
  3. WELLBUTRIN [Concomitant]
     Dosage: UNK
  4. GABAPENTIN [Concomitant]
     Dosage: UNK

REACTIONS (3)
  - Depression [Unknown]
  - Pain [Unknown]
  - Malaise [Unknown]
